FAERS Safety Report 6703203-6 (Version None)
Quarter: 2010Q2

REPORT INFORMATION
  Report Type: 
  Country: None (occurrence: None)
  Receive Date: 20100430
  Receipt Date: 20100422
  Transmission Date: 20101027
  Serious: No
  Sender: FDA-Public Use
  Company Number: 2010BI005251

PATIENT
  Sex: Male

DRUGS (2)
  1. TYSABRI [Suspect]
     Indication: MULTIPLE SCLEROSIS
     Route: 042
     Dates: start: 20070412, end: 20080401
  2. BACLOFEN [Concomitant]
     Indication: MULTIPLE SCLEROSIS

REACTIONS (2)
  - DIARRHOEA [None]
  - INFECTION [None]
